FAERS Safety Report 5674764-3 (Version None)
Quarter: 2008Q2

REPORT INFORMATION
  Report Type: 
  Country: None (occurrence: None)
  Receive Date: 20080304
  Receipt Date: 20070726
  Transmission Date: 20081010
  Serious: Yes (Life-Threatening, Hospitalization)
  Sender: FDA-Public Use
  Company Number: WAES 0707USA04563

PATIENT
  Age: 63 Year
  Sex: Male
  Weight: 87.9978 kg

DRUGS (6)
  1. PRINIVIL [Suspect]
     Dosage: PO
     Route: 048
     Dates: start: 20070701
  2. PLAVIX [Suspect]
  3. HYDRODIURIL [Concomitant]
  4. ZOCOR [Concomitant]
  5. ASPIRIN [Concomitant]
  6. LORATADINE [Concomitant]

REACTIONS (1)
  - ANGIOEDEMA [None]
